FAERS Safety Report 8420722-5 (Version None)
Quarter: 2012Q2

REPORT INFORMATION
  Report Type: 
  Country: None (occurrence: None)
  Receive Date: 20120608
  Receipt Date: 20120531
  Transmission Date: 20120825
  Serious: No
  Sender: FDA-Public Use
  Company Number: US-BIOGENIDEC-2012BI019204

PATIENT
  Age: 53 Year
  Sex: Female

DRUGS (2)
  1. AVONEX [Suspect]
     Route: 030
     Dates: start: 20120522
  2. AVONEX [Suspect]
     Indication: MULTIPLE SCLEROSIS
     Route: 030
     Dates: start: 20120401, end: 20120522

REACTIONS (1)
  - CONTUSION [None]
